FAERS Safety Report 16779317 (Version 1)
Quarter: 2019Q3

REPORT INFORMATION
  Report Type: Spontaneous
  Country: US (occurrence: US)
  Receive Date: 20190906
  Receipt Date: 20190906
  Transmission Date: 20191005
  Serious: No
  Sender: FDA-Public Use
  Company Number: US-PFIZER INC-2019382587

PATIENT
  Sex: Female

DRUGS (1)
  1. RELPAX [Suspect]
     Active Substance: ELETRIPTAN HYDROBROMIDE
     Dosage: UNK  (SHE TOOK 6 TABLETS)

REACTIONS (3)
  - Fibromyalgia [Unknown]
  - Recalled product administered [Unknown]
  - Gastrointestinal disorder [Unknown]
